FAERS Safety Report 18574102 (Version 1)
Quarter: 2020Q4

REPORT INFORMATION
  Report Type: Spontaneous
  Country: US (occurrence: US)
  Receive Date: 20201202
  Receipt Date: 20201202
  Transmission Date: 20210114
  Serious: No
  Sender: FDA-Public Use
  Company Number: None

PATIENT
  Age: 62 Year
  Sex: Male
  Weight: 131.54 kg

DRUGS (2)
  1. AMLODIPINE (AMLODIPINE BESYLAE 10MG TAB) [Suspect]
     Active Substance: AMLODIPINE BESYLATE
     Indication: HYPERTENSION
     Route: 048
     Dates: start: 20140815, end: 20180113
  2. HYDROCHLOROTHIAZIDE/LISINOPRIL(HYDROCHLOROTHIAZIDE 12.5MG/LISINOPRIL 2 [Suspect]
     Active Substance: HYDROCHLOROTHIAZIDE\LISINOPRIL
     Indication: HYPERTENSION
     Route: 048
     Dates: start: 20151221, end: 20180113

REACTIONS (1)
  - Angioedema [None]

NARRATIVE: CASE EVENT DATE: 20180113
